FAERS Safety Report 22859765 (Version 3)
Quarter: 2023Q4

REPORT INFORMATION
  Report Type: Report from Study
  Country: US (occurrence: US)
  Receive Date: 20230824
  Receipt Date: 20231220
  Transmission Date: 20240110
  Serious: No
  Sender: FDA-Public Use
  Company Number: US-ASTELLAS-2023US021950

PATIENT
  Age: 54 Year
  Sex: Female

DRUGS (18)
  1. FEZOLINETANT [Suspect]
     Active Substance: FEZOLINETANT
     Indication: Menopausal symptoms
     Route: 048
     Dates: start: 20230605
  2. FEZOLINETANT [Suspect]
     Active Substance: FEZOLINETANT
     Indication: Night sweats
  3. GABAPENTIN [Concomitant]
     Active Substance: GABAPENTIN
     Indication: Hot flush
     Dosage: UNK UNK, UNKNOWN FREQ.
     Route: 065
     Dates: start: 2019, end: 2023
  4. GABAPENTIN [Concomitant]
     Active Substance: GABAPENTIN
     Indication: Night sweats
     Route: 065
  5. BUPROPION HYDROCHLORIDE [Concomitant]
     Active Substance: BUPROPION HYDROCHLORIDE
     Indication: Product used for unknown indication
     Route: 065
  6. CITALOPRAM HYDROCHLORIDE [Concomitant]
     Active Substance: CITALOPRAM HYDROCHLORIDE
     Indication: Product used for unknown indication
     Route: 065
  7. DALFAMPRIDINE [Concomitant]
     Active Substance: DALFAMPRIDINE
     Indication: Product used for unknown indication
     Route: 065
  8. FLUCONAZOLE [Concomitant]
     Active Substance: FLUCONAZOLE
     Indication: Product used for unknown indication
     Route: 048
  9. LEVOTHYROXINE SODIUM [Concomitant]
     Active Substance: LEVOTHYROXINE SODIUM
     Indication: Product used for unknown indication
     Route: 065
  10. METFORMIN HYDROCHLORIDE [Concomitant]
     Active Substance: METFORMIN HYDROCHLORIDE
     Indication: Product used for unknown indication
     Dosage: 500 MG, TWICE DAILY (WITH MEALS)
     Route: 048
  11. MISOPROSTOL [Concomitant]
     Active Substance: MISOPROSTOL
     Indication: Product used for unknown indication
     Dosage: 200 ?G, OTHER (BEFORE PROCDURE AT NIGHT))
     Route: 067
  12. NYSTATIN;TRIAMCINOLONE [Concomitant]
     Indication: Product used for unknown indication
     Dosage: APPLY PEA SIZED AMOUNT OT VULVA, TWICE DAILY (100000-0.1 UNIT/GM)
     Route: 065
  13. PANTOPRAZOLE SODIUM [Concomitant]
     Active Substance: PANTOPRAZOLE SODIUM
     Indication: Product used for unknown indication
     Route: 065
  14. TRAZODONE HCL [Concomitant]
     Active Substance: TRAZODONE HYDROCHLORIDE
     Indication: Product used for unknown indication
     Dosage: 50 MG 1/2 TABLET, ONCE DAILY
     Route: 065
  15. NUTRAFOL [Concomitant]
     Indication: Hot flush
     Dosage: UNK UNK, UNKNOWN FREQ.
     Route: 065
     Dates: start: 2019, end: 2023
  16. NUTRAFOL [Concomitant]
     Indication: Night sweats
  17. DIETARY SUPPLEMENT [Concomitant]
     Active Substance: DIETARY SUPPLEMENT
     Indication: Hot flush
     Dosage: UNK UNK, UNKNOWN FREQ.
     Route: 065
     Dates: start: 2019, end: 2023
  18. DIETARY SUPPLEMENT [Concomitant]
     Active Substance: DIETARY SUPPLEMENT
     Indication: Night sweats

REACTIONS (1)
  - Hepatic enzyme increased [Unknown]

NARRATIVE: CASE EVENT DATE: 20230705
